FAERS Safety Report 24742428 (Version 1)
Quarter: 2024Q4

REPORT INFORMATION
  Report Type: Report from Study
  Country: ZA (occurrence: ZA)
  Receive Date: 20241217
  Receipt Date: 20241217
  Transmission Date: 20250115
  Serious: Yes (Other)
  Sender: ALEXION PHARMACEUTICALS
  Company Number: ZA-AstraZeneca-CH-00763912A

PATIENT
  Age: 61 Year

DRUGS (18)
  1. BUDESONIDE\FORMOTEROL [Suspect]
     Active Substance: BUDESONIDE\FORMOTEROL
     Route: 065
  2. BUDESONIDE\FORMOTEROL [Suspect]
     Active Substance: BUDESONIDE\FORMOTEROL
     Route: 065
  3. BUDESONIDE\FORMOTEROL [Suspect]
     Active Substance: BUDESONIDE\FORMOTEROL
     Route: 065
  4. BUDESONIDE\FORMOTEROL [Suspect]
     Active Substance: BUDESONIDE\FORMOTEROL
     Route: 065
  5. DORMONOCT [Concomitant]
     Active Substance: LOPRAZOLAM
     Route: 065
  6. DORMONOCT [Concomitant]
     Active Substance: LOPRAZOLAM
     Route: 065
  7. ALLOPURINOL [Concomitant]
     Active Substance: ALLOPURINOL
     Route: 065
  8. ALLOPURINOL [Concomitant]
     Active Substance: ALLOPURINOL
     Route: 065
  9. Lipogen [Concomitant]
     Route: 065
  10. Lipogen [Concomitant]
     Route: 065
  11. MONTELUKAST SODIUM [Concomitant]
     Active Substance: MONTELUKAST\MONTELUKAST SODIUM
     Route: 065
  12. MONTELUKAST SODIUM [Concomitant]
     Active Substance: MONTELUKAST\MONTELUKAST SODIUM
     Route: 065
  13. ALZID [Concomitant]
     Route: 065
  14. ALZID [Concomitant]
     Route: 065
  15. Serdep [Concomitant]
     Dosage: UNK
     Route: 065
  16. Serdep [Concomitant]
     Dosage: UNK
     Route: 065
  17. CLOBAZAM [Concomitant]
     Active Substance: CLOBAZAM
     Route: 065
  18. CLOBAZAM [Concomitant]
     Active Substance: CLOBAZAM
     Route: 065

REACTIONS (1)
  - Dementia [Unknown]
